FAERS Safety Report 5704526-X (Version None)
Quarter: 2008Q2

REPORT INFORMATION
  Report Type: 
  Country: None (occurrence: None)
  Receive Date: 20080411
  Receipt Date: 20080411
  Transmission Date: 20081010
  Serious: No
  Sender: FDA-Public Use
  Company Number: None

PATIENT
  Sex: Female
  Weight: 14.9687 kg

DRUGS (1)
  1. ZYRTEC [Suspect]
     Indication: SEASONAL ALLERGY
     Dosage: 1 TSP -?-  AS NEEDED/DAILY

REACTIONS (11)
  - ABNORMAL BEHAVIOUR [None]
  - AGGRESSION [None]
  - CATATONIA [None]
  - EMOTIONAL DISORDER [None]
  - ILL-DEFINED DISORDER [None]
  - MIDDLE INSOMNIA [None]
  - MOOD SWINGS [None]
  - PERSONALITY CHANGE [None]
  - RASH [None]
  - VULVOVAGINAL PRURITUS [None]
  - WITHDRAWAL SYNDROME [None]
